FAERS Safety Report 14605846 (Version 2)
Quarter: 2018Q3

REPORT INFORMATION
  Report Type: Spontaneous
  Country: US (occurrence: US)
  Receive Date: 20180306
  Receipt Date: 20180713
  Transmission Date: 20181010
  Serious: No
  Sender: FDA-Public Use
  Company Number: US-INTERCEPT-PMOCA2018000267

PATIENT

DRUGS (7)
  1. OCALIVA [Suspect]
     Active Substance: OBETICHOLIC ACID
     Indication: PRIMARY BILIARY CHOLANGITIS
     Dosage: 5 MG, QD
     Route: 048
     Dates: start: 20170718
  2. URSODIOL. [Concomitant]
     Active Substance: URSODIOL
     Dosage: 500 MG, TID
     Route: 048
  3. MERCAPTOPURINE. [Concomitant]
     Active Substance: MERCAPTOPURINE
     Dosage: 50 MG, QD
     Route: 048
  4. QUESTRAN [Suspect]
     Active Substance: CHOLESTYRAMINE
     Dosage: 4 UNK, BID
     Route: 048
  5. GABAPENTIN. [Concomitant]
     Active Substance: GABAPENTIN
     Dosage: 300 MG, QHS
     Route: 048
  6. AMITRIPTYLINE [Concomitant]
     Active Substance: AMITRIPTYLINE
     Dosage: 25 MG, QD
     Route: 048
  7. VITAMIN D [Concomitant]
     Active Substance: CHOLECALCIFEROL
     Dosage: 1000 UNK, QD

REACTIONS (7)
  - Arthralgia [Unknown]
  - Abdominal pain [Unknown]
  - Depression [Unknown]
  - Constipation [Unknown]
  - Pruritus [Unknown]
  - Fatigue [Unknown]
  - Peripheral swelling [Unknown]
